FAERS Safety Report 21322879 (Version 1)
Quarter: 2022Q3

REPORT INFORMATION
  Report Type: Report from Study
  Country: IL (occurrence: IL)
  Receive Date: 20220912
  Receipt Date: 20220912
  Transmission Date: 20221027
  Serious: Yes (Hospitalization)
  Sender: FDA-Public Use
  Company Number: IL-ABBVIE-22K-082-4455949-00

PATIENT
  Age: 86 Year
  Sex: Male

DRUGS (2)
  1. CARBIDOPA\LEVODOPA [Suspect]
     Active Substance: CARBIDOPA\LEVODOPA
     Indication: Parkinson^s disease
     Dosage: MORNING DOSE(ML) 4.5,CONTINUOUS DOSE (ML/H) 3.2, EXTRA DOSE(ML) 2.0,NIGHT DOSE(ML/H) 2.0
     Route: 050
     Dates: start: 20190107
  2. CARBIDOPA\LEVODOPA [Suspect]
     Active Substance: CARBIDOPA\LEVODOPA

REACTIONS (3)
  - Abdominal wall oedema [Unknown]
  - Gastritis [Unknown]
  - Complication of device insertion [Recovering/Resolving]

NARRATIVE: CASE EVENT DATE: 20220627
